FAERS Safety Report 9112234 (Version 1)
Quarter: 2013Q1

REPORT INFORMATION
  Report Type: Spontaneous
  Country: US (occurrence: US)
  Receive Date: 20130219
  Receipt Date: 20130219
  Transmission Date: 20140127
  Serious: No
  Sender: FDA-Public Use
  Company Number: US-BRISTOL-MYERS SQUIBB COMPANY-16365744

PATIENT
  Age: 43 Year
  Sex: Female

DRUGS (1)
  1. ORENCIA FOR INJ [Suspect]
     Indication: RHEUMATOID ARTHRITIS
     Dosage: INITIALLY IV. 2ND INJ:11JAN12 3RD INJ:18JAN12. 1 DF= 125 UNIT NOS. BACK TO IV
     Route: 058
     Dates: start: 20120104

REACTIONS (1)
  - Migraine [Recovered/Resolved]
